FAERS Safety Report 9766904 (Version 1)
Quarter: 2013Q4

REPORT INFORMATION
  Report Type: Spontaneous
  Country: US (occurrence: US)
  Receive Date: 20131217
  Receipt Date: 20131217
  Transmission Date: 20140711
  Serious: No
  Sender: FDA-Public Use
  Company Number: US-GLAXOSMITHKLINE-A1034292A

PATIENT
  Age: 72 Year
  Sex: Male
  Weight: 136.4 kg

DRUGS (13)
  1. BABY ASPIRIN [Concomitant]
  2. LISINOPRIL [Concomitant]
  3. MULTIVITAMIN [Concomitant]
  4. ZINC [Concomitant]
  5. VITAMIN B6 [Concomitant]
  6. ALEVE [Concomitant]
  7. PEPCID AC [Concomitant]
  8. TUMS [Concomitant]
  9. VOTRIENT [Suspect]
     Indication: ANGIOSARCOMA
     Dosage: 800MG PER DAY
     Route: 048
  10. UNSPECIFIED MEDICATION [Suspect]
     Indication: PRODUCT USED FOR UNKNOWN INDICATION
     Route: 065
  11. WITCH HAZEL [Concomitant]
  12. FUROSEMIDE [Concomitant]
  13. ALLEGRA [Concomitant]

REACTIONS (1)
  - Rash [Not Recovered/Not Resolved]
